FAERS Safety Report 17022165 (Version 1)
Quarter: 2019Q4

REPORT INFORMATION
  Report Type: Spontaneous
  Country: TR (occurrence: TR)
  Receive Date: 20191112
  Receipt Date: 20191112
  Transmission Date: 20200122
  Serious: Yes (Hospitalization)
  Sender: FDA-Public Use
  Company Number: TR-AVION PHARMACEUTICALS, LLC-2076732

PATIENT
  Age: 16 Year
  Sex: Female

DRUGS (1)
  1. GLOPERBA [Suspect]
     Active Substance: COLCHICINE
     Indication: SUICIDE ATTEMPT
     Route: 048

REACTIONS (5)
  - Rhabdomyolysis [Recovered/Resolved]
  - Thrombocytopenia [Recovered/Resolved]
  - Pancytopenia [Recovered/Resolved]
  - Granulocytes abnormal [Recovered/Resolved]
  - Pancreatitis acute [Recovered/Resolved]
